FAERS Safety Report 9319949 (Version 1)
Quarter: 2013Q2

REPORT INFORMATION
  Report Type: Spontaneous
  Country: BR (occurrence: BR)
  Receive Date: 20130530
  Receipt Date: 20130530
  Transmission Date: 20140414
  Serious: Yes (Other)
  Sender: FDA-Public Use
  Company Number: BR-PFIZER INC-2013162090

PATIENT
  Age: 53 Year
  Sex: 0
  Weight: 100 kg

DRUGS (1)
  1. FRONTAL [Suspect]
     Indication: ANXIETY
     Route: 048

REACTIONS (2)
  - Fall [Unknown]
  - Muscular weakness [Unknown]
